FAERS Safety Report 6973948-1 (Version None)
Quarter: 2010Q3

REPORT INFORMATION
  Report Type: 
  Country: None (occurrence: None)
  Receive Date: 20100907
  Receipt Date: 20100823
  Transmission Date: 20110219
  Serious: Yes (Hospitalization)
  Sender: FDA-Public Use
  Company Number: 1000016000

PATIENT
  Age: 55 Year
  Sex: Male

DRUGS (2)
  1. CITALOPRAM (CITALOPRAM HYDROBROMIDE) [Suspect]
     Indication: DEPRESSION
     Dosage: 20 MG (20 MG, 1 IN 1 D) ORAL
     Route: 048
     Dates: start: 20090801, end: 20100816
  2. NAPROXEN [Concomitant]

REACTIONS (5)
  - ANKLE FRACTURE [None]
  - DIZZINESS [None]
  - DUODENAL ULCER HAEMORRHAGE [None]
  - FALL [None]
  - HAEMOGLOBIN DECREASED [None]
